FAERS Safety Report 6371348-9 (Version None)
Quarter: 2009Q3

REPORT INFORMATION
  Report Type: 
  Country: None (occurrence: None)
  Receive Date: 20090923
  Receipt Date: 20090608
  Transmission Date: 20100115
  Serious: Yes (Other)
  Sender: FDA-Public Use
  Company Number: BR-PFIZER INC-2009224252

PATIENT
  Age: 52 Year

DRUGS (3)
  1. VIAGRA [Suspect]
     Indication: ERECTILE DYSFUNCTION
     Dosage: UNK
     Route: 048
  2. AAS [Concomitant]
     Indication: CORONARY ARTERY DISEASE
  3. ENALAPRIL [Concomitant]
     Indication: HYPERTENSION

REACTIONS (6)
  - ANGIOEDEMA [None]
  - ARTHROPOD BITE [None]
  - INCORRECT ROUTE OF DRUG ADMINISTRATION [None]
  - LIP OEDEMA [None]
  - OESOPHAGEAL OEDEMA [None]
  - TONGUE OEDEMA [None]
